FAERS Safety Report 8779728 (Version 1)
Quarter: 2012Q4

REPORT INFORMATION
  Report Type: 
  Country: US (occurrence: US)
  Receive Date: 20120912
  Receipt Date: 20120912
  Transmission Date: 20130627
  Serious: No
  Sender: FDA-Public Use
  Company Number: US-TEVA-345473USA

PATIENT
  Age: 77 Year
  Sex: Male
  Weight: 88.53 kg

DRUGS (1)
  1. QNASL [Suspect]
     Indication: HYPERSENSITIVITY
     Dosage: 80 Microgram Daily; 2 spray in each nostril
     Route: 055
     Dates: start: 20120621

REACTIONS (4)
  - Rhinorrhoea [Recovered/Resolved]
  - Upper-airway cough syndrome [Recovered/Resolved]
  - Dysphonia [Recovered/Resolved]
  - Cough [Recovered/Resolved]
